FAERS Safety Report 7576836-5 (Version None)
Quarter: 2011Q2

REPORT INFORMATION
  Report Type: 
  Country: None (occurrence: None)
  Receive Date: 20110628
  Receipt Date: 20110620
  Transmission Date: 20111010
  Serious: No
  Sender: FDA-Public Use
  Company Number: US-PFIZER INC-2011114817

PATIENT
  Sex: Female
  Weight: 65.306 kg

DRUGS (5)
  1. LIPITOR [Concomitant]
     Dosage: UNK
  2. ESTRING [Suspect]
     Indication: MENOPAUSAL SYMPTOMS
     Dosage: 2 MG, UNK
     Route: 067
     Dates: start: 20091201
  3. ATENOLOL [Concomitant]
     Dosage: UNK
  4. LISINOPRIL [Concomitant]
     Dosage: UNK
  5. WARFARIN [Concomitant]
     Dosage: UNK

REACTIONS (1)
  - DRUG INEFFECTIVE [None]
